FAERS Safety Report 12191218 (Version 5)
Quarter: 2016Q3

REPORT INFORMATION
  Report Type: Report from Study
  Country: JP (occurrence: JP)
  Receive Date: 20160318
  Receipt Date: 20160810
  Transmission Date: 20161109
  Serious: Yes (Death, Disabling, Other)
  Sender: FDA-Public Use
  Company Number: JP-JNJFOC-20160316217

PATIENT
  Age: 67 Year
  Sex: Male
  Weight: 71 kg

DRUGS (3)
  1. DEXAMETHASONE. [Concomitant]
     Active Substance: DEXAMETHASONE
     Indication: PREMEDICATION
     Route: 065
     Dates: start: 20160302
  2. YONDELIS [Suspect]
     Active Substance: TRABECTEDIN
     Indication: ANGIOSARCOMA
     Dosage: AS 24 HOUR INFUSION, CYCLE 1
     Route: 041
     Dates: start: 20160302
  3. BROTIZOLAM [Concomitant]
     Active Substance: BROTIZOLAM
     Indication: INSOMNIA
     Route: 048

REACTIONS (7)
  - Blood bilirubin increased [Not Recovered/Not Resolved]
  - Aspartate aminotransferase increased [Not Recovered/Not Resolved]
  - Anaemia [Not Recovered/Not Resolved]
  - Alanine aminotransferase increased [Not Recovered/Not Resolved]
  - Hypoalbuminaemia [Not Recovered/Not Resolved]
  - Pulmonary haemorrhage [Fatal]
  - Platelet count decreased [Not Recovered/Not Resolved]

NARRATIVE: CASE EVENT DATE: 20160305
